FAERS Safety Report 9695961 (Version 2)
Quarter: 2013Q4

REPORT INFORMATION
  Report Type: Spontaneous
  Country: US (occurrence: US)
  Receive Date: 20131119
  Receipt Date: 20131203
  Transmission Date: 20140711
  Serious: Yes (Other)
  Sender: FDA-Public Use
  Company Number: 2013SP003334

PATIENT
  Age: 50 Year
  Sex: Female

DRUGS (5)
  1. LATUDA [Suspect]
     Indication: BIPOLAR I DISORDER
     Route: 048
     Dates: start: 201311
  2. LATUDA [Suspect]
     Indication: BIPOLAR I DISORDER
     Route: 048
     Dates: start: 201306
  3. DEPAKOTE [Concomitant]
  4. KLONOPIN [Concomitant]
  5. PRILOSEC [Concomitant]

REACTIONS (4)
  - Ventricular extrasystoles [Not Recovered/Not Resolved]
  - Palpitations [Not Recovered/Not Resolved]
  - Orthostatic hypotension [Not Recovered/Not Resolved]
  - Nausea [Not Recovered/Not Resolved]
